FAERS Safety Report 5787312-4 (Version None)
Quarter: 2008Q2

REPORT INFORMATION
  Report Type: 
  Country: None (occurrence: None)
  Receive Date: 20080625
  Receipt Date: 20070817
  Transmission Date: 20081010
  Serious: No
  Sender: FDA-Public Use
  Company Number: US-ASTRAZENECA-2007UW20105

PATIENT
  Age: 82 Year
  Sex: Female
  Weight: 90.7 kg

DRUGS (7)
  1. PULMICORT RESPULES [Suspect]
     Indication: CHRONIC OBSTRUCTIVE PULMONARY DISEASE
     Dosage: 0.5MG/2ML
     Route: 055
  2. PULMICORT RESPULES [Suspect]
     Indication: ASTHMA
     Dosage: 0.5MG/2ML
     Route: 055
  3. DUONEB [Concomitant]
  4. COZAAR [Concomitant]
  5. PLAVIX [Concomitant]
  6. ASPIRIN [Concomitant]
  7. CODEINE [Concomitant]

REACTIONS (2)
  - BLOOD PRESSURE INCREASED [None]
  - MEDICATION ERROR [None]
